FAERS Safety Report 6721825-3 (Version None)
Quarter: 2010Q2

REPORT INFORMATION
  Report Type: 
  Country: None (occurrence: None)
  Receive Date: 20100512
  Receipt Date: 20100503
  Transmission Date: 20101027
  Serious: Yes (Other)
  Sender: FDA-Public Use
  Company Number: US-ABBOTT-10P-163-0642416-00

PATIENT
  Sex: Female
  Weight: 99.88 kg

DRUGS (10)
  1. SIMCOR [Suspect]
     Indication: HYPERLIPIDAEMIA
     Dates: start: 20100401
  2. NIASPAN [Suspect]
     Indication: HYPERLIPIDAEMIA
     Dates: start: 20090101, end: 20100401
  3. CELEBREX [Concomitant]
     Indication: ARTHRITIS
  4. PROZAC [Concomitant]
     Indication: DRUG USE FOR UNKNOWN INDICATION
  5. LISINOPRIL [Concomitant]
     Indication: HYPERTENSION
  6. LASIX [Concomitant]
     Indication: DRUG USE FOR UNKNOWN INDICATION
  7. TYLENOL (CAPLET) [Concomitant]
     Indication: ARTHRITIS
  8. ASPIRIN [Concomitant]
     Indication: DRUG USE FOR UNKNOWN INDICATION
  9. IRON [Concomitant]
     Indication: DRUG USE FOR UNKNOWN INDICATION
  10. ALLERGY SHOTS [Concomitant]
     Indication: HYPERSENSITIVITY

REACTIONS (4)
  - ERYTHEMA [None]
  - FLUSHING [None]
  - KNEE ARTHROPLASTY [None]
  - PARAESTHESIA [None]
